FAERS Safety Report 10469728 (Version 1)
Quarter: 2014Q3

REPORT INFORMATION
  Report Type: Spontaneous
  Country: US (occurrence: None)
  Receive Date: 20140905
  Receipt Date: 20140905
  Transmission Date: 20150326
  Serious: Yes (Hospitalization)
  Sender: FDA-Public Use
  Company Number: A-NJ2014-099831

PATIENT
  Age: 52 Year
  Sex: Female

DRUGS (2)
  1. VELETRI [Suspect]
     Active Substance: EPOPROSTENOL
     Indication: CONNECTIVE TISSUE DISORDER
     Dosage: PER MINUTE
     Route: 042
     Dates: start: 20140325
  2. WARFARIN [Concomitant]
     Active Substance: WARFARIN

REACTIONS (2)
  - Cardiac failure [None]
  - Condition aggravated [None]
